FAERS Safety Report 9040471 (Version 1)
Quarter: 2013Q1

REPORT INFORMATION
  Report Type: Report from Study
  Country: US (occurrence: US)
  Receive Date: 20130129
  Receipt Date: 20130129
  Transmission Date: 20140127
  Serious: No
  Sender: FDA-Public Use
  Company Number: US-ABBOTT-12P-163-0892466-00

PATIENT
  Age: 55 Year
  Sex: Female

DRUGS (8)
  1. HUMIRA 40 MG/ 0.8 ML PRE-FILLED SYRINGE [Suspect]
     Indication: CROHN^S DISEASE
     Dates: start: 20111017
  2. DONNATAL [Concomitant]
     Indication: CROHN^S DISEASE
     Dosage: EXTEND BID
  3. PREDNISONE [Concomitant]
     Indication: PRODUCT USED FOR UNKNOWN INDICATION
  4. DEXILANT [Concomitant]
     Indication: OESOPHAGEAL DISORDER
     Dosage: 60 MG DAILY
  5. DIPENTUM [Concomitant]
     Indication: PRODUCT USED FOR UNKNOWN INDICATION
  6. PROBIOTICS [Concomitant]
     Indication: PRODUCT USED FOR UNKNOWN INDICATION
  7. TOVIAZ [Concomitant]
     Indication: BLADDER DISORDER
     Dosage: ER 4 MG DAILY
  8. HYOSCYAMINE [Concomitant]
     Indication: PAIN

REACTIONS (6)
  - Malaise [Unknown]
  - Emotional distress [Not Recovered/Not Resolved]
  - Stress [Not Recovered/Not Resolved]
  - Blood potassium decreased [Not Recovered/Not Resolved]
  - Vitamin D decreased [Not Recovered/Not Resolved]
  - Diabetes mellitus [Not Recovered/Not Resolved]
